FAERS Safety Report 4831457-X (Version None)
Quarter: 2005Q4

REPORT INFORMATION
  Report Type: 
  Country: None (occurrence: None)
  Receive Date: 20051118
  Receipt Date: 20051110
  Transmission Date: 20060501
  Serious: Yes (Hospitalization)
  Sender: FDA-Public Use
  Company Number: GR-ABBOTT-05P-066-0317002-00

PATIENT
  Age: 70 Year
  Sex: Male

DRUGS (3)
  1. ADALIMUMAB [Suspect]
     Indication: RHEUMATOID ARTHRITIS
     Route: 058
  2. CORTICOSTEROIDS [Concomitant]
     Indication: RHEUMATOID ARTHRITIS
     Dosage: LOW-DOSE
  3. METHOTREXATE [Concomitant]
     Indication: RHEUMATOID ARTHRITIS

REACTIONS (2)
  - MANTLE CELL LYMPHOMA [None]
  - SUPERIOR VENA CAVAL OCCLUSION [None]
